FAERS Safety Report 26066739 (Version 1)
Quarter: 2025Q4

REPORT INFORMATION
  Report Type: Spontaneous
  Country: US (occurrence: US)
  Receive Date: 20251119
  Receipt Date: 20251119
  Transmission Date: 20260118
  Serious: Yes (Hospitalization)
  Sender: NEUROCRINE BIOSCIENCES
  Company Number: US-NEUROCRINE BIOSCIENCES INC.-2025NBI15085

PATIENT
  Sex: Male

DRUGS (1)
  1. INGREZZA [Suspect]
     Active Substance: VALBENAZINE DITOSYLATE
     Indication: Huntington^s disease
     Dosage: UNKNOWN
     Route: 065

REACTIONS (2)
  - Abnormal behaviour [Unknown]
  - Mood altered [Unknown]
